FAERS Safety Report 6769838-X (Version None)
Quarter: 2010Q2

REPORT INFORMATION
  Report Type: 
  Country: None (occurrence: None)
  Receive Date: 20100615
  Receipt Date: 20100604
  Transmission Date: 20101027
  Serious: Yes (Other)
  Sender: FDA-Public Use
  Company Number: SE-JNJFOC-20100601730

PATIENT
  Age: 49 Year
  Sex: Female

DRUGS (4)
  1. REMICADE [Suspect]
     Indication: COLITIS ULCERATIVE
     Dosage: 9TH INFUSION
     Route: 042
  2. REMICADE [Suspect]
     Route: 042
  3. ASACOL [Concomitant]
  4. SALAZOPYRIN [Concomitant]

REACTIONS (1)
  - VISUAL FIELD DEFECT [None]
